FAERS Safety Report 9375116 (Version 1)
Quarter: 2013Q2

REPORT INFORMATION
  Report Type: Spontaneous
  Country: US (occurrence: US)
  Receive Date: 20130628
  Receipt Date: 20130628
  Transmission Date: 20140414
  Serious: Yes (Other)
  Sender: FDA-Public Use
  Company Number: US-ELI_LILLY_AND_COMPANY-US201306006507

PATIENT
  Age: 27 Year
  Sex: Male

DRUGS (3)
  1. OLANZAPINE [Suspect]
     Indication: SCHIZOPHRENIA
  2. FLUOXETINE HYDROCHLORIDE [Interacting]
     Indication: DEPRESSION
     Dosage: 40 MG, UNKNOWN
  3. LURASIDONE [Interacting]
     Indication: PSYCHOTIC DISORDER
     Dosage: 40 MG, UNKNOWN

REACTIONS (3)
  - Dystonia [Recovered/Resolved]
  - Drug interaction [Recovered/Resolved]
  - Weight increased [Unknown]
